FAERS Safety Report 14752303 (Version 1)
Quarter: 2018Q2

REPORT INFORMATION
  Report Type: Spontaneous
  Country: US (occurrence: US)
  Receive Date: 20180412
  Receipt Date: 20180412
  Transmission Date: 20180711
  Serious: Yes (Other)
  Sender: FDA-Public Use
  Company Number: US-BAYER-2018-064488

PATIENT
  Age: 63 Year
  Sex: Female
  Weight: 68 kg

DRUGS (13)
  1. XANAX [Concomitant]
     Active Substance: ALPRAZOLAM
     Dosage: UNK
  2. ZYRTEC [CETIRIZINE HYDROCHLORIDE,PSEUDOEPHEDRINE HYDROCHLORIDE] [Concomitant]
     Dosage: UNK
  3. ALKA-SELTZER PLUS SEVERE SINUS CONGESTION AND COUGH DAY AND NIGHT [Suspect]
     Active Substance: ACETAMINOPHEN\DEXTROMETHORPHAN HYDROBROMIDE\DOXYLAMINE SUCCINATE\PHENYLEPHRINE
     Indication: ALLERGIC RESPIRATORY SYMPTOM
     Dosage: 2 DF, QD EVERY 4-5 HOURS
     Route: 048
     Dates: start: 2015
  4. ALKA-SELTZER PLUS SEVERE SINUS CONGESTION AND COUGH DAY AND NIGHT [Suspect]
     Active Substance: ACETAMINOPHEN\DEXTROMETHORPHAN HYDROBROMIDE\DOXYLAMINE SUCCINATE\PHENYLEPHRINE
     Indication: ALLERGIC RESPIRATORY SYMPTOM
     Dosage: 2 DF, QD 2 EVEY 4-5 HOURS
     Route: 048
     Dates: start: 2015
  5. ALKA-SELTZER PLUS SEVERE SINUS CONGESTION AND COUGH DAY AND NIGHT [Suspect]
     Active Substance: ACETAMINOPHEN\DEXTROMETHORPHAN HYDROBROMIDE\DOXYLAMINE SUCCINATE\PHENYLEPHRINE
     Indication: NASOPHARYNGITIS
  6. LANSOPRAZOLE. [Concomitant]
     Active Substance: LANSOPRAZOLE
     Dosage: UNK
  7. THEOPHYLLINE [Concomitant]
     Active Substance: THEOPHYLLINE ANHYDROUS
     Dosage: UNK
  8. NASAL DECONGESTANT [PSEUDOEPHEDRINE HYDROCHLORIDE,TRIPROLIDINE HYD [Concomitant]
     Dosage: UNK
  9. ALKA-SELTZER PLUS SEVERE SINUS CONGESTION AND COUGH DAY AND NIGHT [Suspect]
     Active Substance: ACETAMINOPHEN\DEXTROMETHORPHAN HYDROBROMIDE\DOXYLAMINE SUCCINATE\PHENYLEPHRINE
     Indication: NASOPHARYNGITIS
  10. CITALOPRAM [Concomitant]
     Active Substance: CITALOPRAM HYDROBROMIDE
     Dosage: UNK
  11. ALKA-SELTZER PLUS COLD AND COUGH FORMULA [Suspect]
     Active Substance: ACETAMINOPHEN\CHLORPHENIRAMINE\DEXTROMETHORPHAN\PHENYLEPHRINE
     Indication: ALLERGIC RESPIRATORY SYMPTOM
     Dosage: 2 DF, QD EVERY 4-5 HOURS
     Route: 048
     Dates: start: 2018
  12. ALKA-SELTZER PLUS COLD AND COUGH FORMULA [Suspect]
     Active Substance: ACETAMINOPHEN\CHLORPHENIRAMINE\DEXTROMETHORPHAN\PHENYLEPHRINE
     Indication: NASOPHARYNGITIS
  13. MUCINEX DM [Concomitant]
     Active Substance: DEXTROMETHORPHAN HYDROBROMIDE\GUAIFENESIN
     Dosage: UNK

REACTIONS (6)
  - Urticaria [Not Recovered/Not Resolved]
  - Drug ineffective [Unknown]
  - Pruritus [Not Recovered/Not Resolved]
  - Drug dependence [Not Recovered/Not Resolved]
  - Rash [Unknown]
  - Incorrect drug administration duration [Unknown]

NARRATIVE: CASE EVENT DATE: 201801
